FAERS Safety Report 15631137 (Version 1)
Quarter: 2018Q4

REPORT INFORMATION
  Report Type: Spontaneous
  Country: LY (occurrence: LY)
  Receive Date: 20181119
  Receipt Date: 20181119
  Transmission Date: 20190205
  Serious: Yes (Hospitalization)
  Sender: FDA-Public Use
  Company Number: LY-BIOVITRUM-2018LY1431

PATIENT
  Sex: Male

DRUGS (2)
  1. ORFADIN [Suspect]
     Active Substance: NITISINONE
     Indication: TYROSINAEMIA
     Dates: start: 201710
  2. ORFADIN [Suspect]
     Active Substance: NITISINONE
     Dates: start: 200309

REACTIONS (13)
  - Paraesthesia [Recovered/Resolved]
  - Tachycardia [Recovered/Resolved]
  - Underdose [Unknown]
  - Asthenia [Recovered/Resolved]
  - Seizure [Unknown]
  - Hypertension [Recovered/Resolved]
  - Treatment noncompliance [Recovered/Resolved]
  - Ileus [Recovered/Resolved]
  - Pain [Recovered/Resolved]
  - Product supply issue [Unknown]
  - Chest pain [Unknown]
  - Amino acid level increased [Unknown]
  - Dyspnoea [Unknown]

NARRATIVE: CASE EVENT DATE: 2017
